FAERS Safety Report 11752191 (Version 4)
Quarter: 2016Q1

REPORT INFORMATION
  Report Type: Report from Study
  Country: GR (occurrence: GR)
  Receive Date: 20151118
  Receipt Date: 20160303
  Transmission Date: 20160525
  Serious: Yes (Hospitalization)
  Sender: FDA-Public Use
  Company Number: GR-ABBVIE-15P-066-1476482-00

PATIENT
  Age: 77 Year
  Sex: Male

DRUGS (13)
  1. STILNOX [Concomitant]
     Active Substance: ZOLPIDEM TARTRATE
     Indication: PRODUCT USED FOR UNKNOWN INDICATION
     Route: 048
     Dates: start: 2015
  2. SALOSPIR [Concomitant]
     Active Substance: ASPIRIN
     Indication: PRODUCT USED FOR UNKNOWN INDICATION
     Route: 048
  3. DUPHALAC [Concomitant]
     Active Substance: LACTULOSE
     Indication: PRODUCT USED FOR UNKNOWN INDICATION
     Route: 048
  4. DUODOPA [Suspect]
     Active Substance: CARBIDOPA\LEVODOPA
     Dosage: MORNING DOSE: 19ML; CONTINUOUS RATE: 7 ML/H; EXTRA DOSE: 5 ML
     Route: 050
     Dates: end: 201511
  5. DUODOPA [Suspect]
     Active Substance: CARBIDOPA\LEVODOPA
     Dosage: MORNING DOSE: 19ML; CONTINUOUS RATE: 7.4 ML/H; EXTRA DOSE: 5.4 ML
     Route: 050
     Dates: start: 201511
  6. DUODOPA [Suspect]
     Active Substance: CARBIDOPA\LEVODOPA
     Indication: PARKINSON^S DISEASE
     Dosage: MORNING DOSE: 19ML; CONTINUOUS RATE: 6.8 ML/H; EXTRA DOSE: 4.5 ML
     Route: 050
     Dates: start: 20140529
  7. QUEPIN [Concomitant]
     Indication: PRODUCT USED FOR UNKNOWN INDICATION
     Route: 048
  8. MADOPAR [Concomitant]
     Active Substance: BENSERAZIDE HYDROCHLORIDE\LEVODOPA
     Indication: PRODUCT USED FOR UNKNOWN INDICATION
     Route: 048
  9. EXELON [Concomitant]
     Active Substance: RIVASTIGMINE TARTRATE
     Indication: PRODUCT USED FOR UNKNOWN INDICATION
     Route: 062
  10. FINAR [Concomitant]
     Indication: PROSTATIC DISORDER
     Route: 048
  11. VITAMIN B COMPLEX (NEUROBION) [Concomitant]
     Indication: PRODUCT USED FOR UNKNOWN INDICATION
     Route: 030
  12. ALFURAL [Concomitant]
     Indication: PRODUCT USED FOR UNKNOWN INDICATION
     Route: 048
  13. FILICINE [Concomitant]
     Indication: PRODUCT USED FOR UNKNOWN INDICATION
     Route: 048

REACTIONS (11)
  - Drug effect variable [Unknown]
  - Freezing phenomenon [Not Recovered/Not Resolved]
  - Drug ineffective [Not Recovered/Not Resolved]
  - Musculoskeletal stiffness [Not Recovered/Not Resolved]
  - Dysstasia [Not Recovered/Not Resolved]
  - Device issue [Unknown]
  - Musculoskeletal stiffness [Not Recovered/Not Resolved]
  - Incorrect route of drug administration [Unknown]
  - Blood pressure decreased [Not Recovered/Not Resolved]
  - Aggression [Not Recovered/Not Resolved]
  - Gastrointestinal bacterial infection [Unknown]

NARRATIVE: CASE EVENT DATE: 20150927
